FAERS Safety Report 9056773 (Version 3)
Quarter: 2013Q1

REPORT INFORMATION
  Report Type: Report from Study
  Country: AU (occurrence: AU)
  Receive Date: 20130201
  Receipt Date: 20130306
  Transmission Date: 20140127
  Serious: Yes (Hospitalization, Other)
  Sender: FDA-Public Use
  Company Number: PHHY2013AU009449

PATIENT
  Age: 71 None
  Sex: Female
  Weight: 86 kg

DRUGS (7)
  1. CLOZARIL [Suspect]
     Dosage: 150 MG, UNK
     Dates: start: 20100301
  2. CLOZARIL [Suspect]
     Dosage: 50 MG
     Route: 048
     Dates: start: 20130201
  3. ESCITALOPRAM [Concomitant]
     Dosage: 10 MG MANE
     Route: 048
  4. ASPIRIN [Concomitant]
     Dosage: 1000 MG DAILY
     Route: 048
  5. MEGAFOL [Concomitant]
     Dosage: 5 MG DAILY
     Route: 048
  6. MIXTARD 30/70 [Concomitant]
     Dosage: 40 IU NOCTE
     Route: 058
  7. MIXTARD 30/70 [Concomitant]
     Dosage: 20 IU NOCTE
     Route: 058

REACTIONS (6)
  - White blood cell count increased [Unknown]
  - Lower respiratory tract infection [Unknown]
  - Infection [Unknown]
  - Decubitus ulcer [Unknown]
  - Staphylococcal sepsis [Recovering/Resolving]
  - Pyrexia [Recovering/Resolving]
